FAERS Safety Report 9473837 (Version 2)
Quarter: 2013Q3

REPORT INFORMATION
  Report Type: Spontaneous
  Country: US (occurrence: US)
  Receive Date: 20130823
  Receipt Date: 20130823
  Transmission Date: 20140515
  Serious: No
  Sender: FDA-Public Use
  Company Number: US-BRISTOL-MYERS SQUIBB COMPANY-17031840

PATIENT
  Age: 49 Year
  Sex: Female

DRUGS (4)
  1. SPRYCEL [Suspect]
     Indication: CHRONIC MYELOID LEUKAEMIA
     Route: 048
     Dates: start: 20120112
  2. SYNTHROID [Concomitant]
  3. JANUMET [Concomitant]
     Dosage: 1DF:50/1000MG
  4. VITAMIN D [Concomitant]

REACTIONS (4)
  - Rash maculo-papular [Not Recovered/Not Resolved]
  - Mental impairment [Unknown]
  - Disturbance in attention [Unknown]
  - Amnesia [Unknown]
